FAERS Safety Report 4367732-5 (Version None)
Quarter: 2004Q2

REPORT INFORMATION
  Report Type: 
  Country: None (occurrence: None)
  Receive Date: 20040527
  Receipt Date: 20040302
  Transmission Date: 20050107
  Serious: Yes (Other)
  Sender: FDA-Public Use
  Company Number: 360727

PATIENT
  Age: 30 Year
  Sex: Male
  Weight: 79.4 kg

DRUGS (1)
  1. LARIAM [Suspect]
     Indication: DRUG USE FOR UNKNOWN INDICATION
     Dosage: ORAL
     Route: 048
     Dates: start: 20020215, end: 20020315

REACTIONS (2)
  - ANXIETY [None]
  - PARANOIA [None]
